FAERS Safety Report 4417633-9 (Version None)
Quarter: 2004Q2

REPORT INFORMATION
  Report Type: 
  Country: None (occurrence: None)
  Receive Date: 20040625
  Receipt Date: 20040513
  Transmission Date: 20050107
  Serious: Yes (Hospitalization)
  Sender: FDA-Public Use
  Company Number: 206494

PATIENT
  Sex: Female

DRUGS (4)
  1. AVASTIN [Suspect]
     Indication: COLORECTAL CANCER METASTATIC
     Dosage: 400 MG, UNK; INTRAVENOUS
     Route: 042
     Dates: start: 20040323, end: 20040101
  2. IRINOTECAN (IRINOTECAN HYDROCHLORIDE) [Concomitant]
  3. FLUOROURACIL [Concomitant]
  4. COUMADIN [Concomitant]

REACTIONS (1)
  - WOUND DEHISCENCE [None]
